FAERS Safety Report 4450755-5 (Version None)
Quarter: 2004Q3

REPORT INFORMATION
  Report Type: 
  Country: None (occurrence: None)
  Receive Date: 20040913
  Receipt Date: 20040528
  Transmission Date: 20050211
  Serious: No
  Sender: FDA-Public Use
  Company Number: 2004-BP-04301BP(0)

PATIENT
  Age: 73 Year
  Sex: Female

DRUGS (9)
  1. SPIRIVA [Suspect]
     Indication: CHRONIC OBSTRUCTIVE AIRWAYS DISEASE
     Dosage: 18 MCG (18 MCG),IH
     Dates: start: 20040525, end: 20040527
  2. DOGOXIN (DIGOXIN) [Concomitant]
  3. DILTIAZEM [Concomitant]
  4. ZESTRIL [Concomitant]
  5. ZESCOL [Concomitant]
  6. PREDNISONE [Concomitant]
  7. GLUCOTROL [Concomitant]
  8. AMBIEN [Concomitant]
  9. OXYGEN (OXYGEN) [Concomitant]

REACTIONS (1)
  - DYSPNOEA [None]
